FAERS Safety Report 6712624-7 (Version None)
Quarter: 2010Q2

REPORT INFORMATION
  Report Type: 
  Country: None (occurrence: None)
  Receive Date: 20100505
  Receipt Date: 20100505
  Transmission Date: 20101027
  Serious: Yes (Other)
  Sender: FDA-Public Use
  Company Number: None

PATIENT
  Age: 23 Month
  Sex: Male
  Weight: 10.8863 kg

DRUGS (2)
  1. TYLENOL INFANT DROPS 80 MG PER 0.8 ML MCNEIL [Suspect]
     Indication: EAR INFECTION
     Dosage: 1.4 ML EVERY 4 HRS
     Dates: start: 20100420
  2. CHILDREN'S MOTRIN [Suspect]
     Dosage: 1 TSP EVERY 4 HRS
     Dates: start: 20100421

REACTIONS (3)
  - COUGH [None]
  - CROUP INFECTIOUS [None]
  - VOMITING [None]
